FAERS Safety Report 8875674 (Version 3)
Quarter: 2012Q4

REPORT INFORMATION
  Report Type: 
  Country: US (occurrence: US)
  Receive Date: 20121023
  Receipt Date: 20121126
  Transmission Date: 20130627
  Serious: Yes (Disabling, Other)
  Sender: FDA-Public Use
  Company Number: PHEH2012US020115

PATIENT
  Age: 47 Year
  Sex: Female
  Weight: 62.64 kg

DRUGS (8)
  1. GILENYA [Suspect]
     Indication: MULTIPLE SCLEROSIS
     Dosage: 0.5 mg, QD
     Route: 048
     Dates: start: 20120814, end: 20121018
  2. VITAMIN D [Concomitant]
     Indication: MULTIPLE SCLEROSIS
     Dosage: 2500 U, QD
     Route: 048
  3. BACLOFEN [Concomitant]
     Indication: MUSCLE SPASTICITY
     Dosage: 10 mg, UNK
     Route: 048
  4. ALLEGRA [Concomitant]
     Dosage: 180 mg, QD
  5. SINGULAR [Concomitant]
     Dosage: 10 mg, QD
  6. DIAZIDE [Concomitant]
  7. MULTIPLE VITAMINS [Concomitant]
  8. LIPITOR [Concomitant]
     Dosage: 10 mg, QHS

REACTIONS (12)
  - Dizziness [Recovered/Resolved]
  - Headache [Recovered/Resolved]
  - Cough [Recovered/Resolved]
  - Dyspnoea [Recovered/Resolved]
  - Meniere^s disease [Recovered/Resolved]
  - Eyelid oedema [Not Recovered/Not Resolved]
  - Frustration [Not Recovered/Not Resolved]
  - Ear congestion [Not Recovered/Not Resolved]
  - Hypersensitivity [Not Recovered/Not Resolved]
  - Fatigue [Not Recovered/Not Resolved]
  - Decreased immune responsiveness [Not Recovered/Not Resolved]
  - White blood cell count decreased [Unknown]
